FAERS Safety Report 8707806 (Version 2)
Quarter: 2013Q4

REPORT INFORMATION
  Report Type: Spontaneous
  Country: US (occurrence: US)
  Receive Date: 20120806
  Receipt Date: 20131031
  Transmission Date: 20140711
  Serious: Yes (Other)
  Sender: FDA-Public Use
  Company Number: US-009507513-1208USA000545

PATIENT
  Sex: Male

DRUGS (6)
  1. DULERA [Suspect]
     Indication: COUGH
     Dosage: 200MCG 2 PUFFS ONCE AND ALSO 100MCG IN SAME MANNER, BID
     Route: 055
     Dates: start: 20120319
  2. DULERA [Suspect]
     Dosage: 200MCG 2 PUFFS ONCE AND ALSO 100MCG IN SAME MANNER, BID
     Route: 055
     Dates: end: 201204
  3. ALBUTEROL [Concomitant]
  4. FLOVENT [Concomitant]
  5. QVAR [Concomitant]
  6. ASMANEX TWISTHALER [Concomitant]

REACTIONS (2)
  - Aphonia [Recovering/Resolving]
  - Dysphonia [Recovering/Resolving]
